FAERS Safety Report 4803237-2 (Version None)
Quarter: 2005Q4

REPORT INFORMATION
  Report Type: 
  Country: None (occurrence: None)
  Receive Date: 20051013
  Receipt Date: 20050926
  Transmission Date: 20060501
  Serious: Yes (Hospitalization)
  Sender: FDA-Public Use
  Company Number: US_031199076

PATIENT
  Age: 64 Year
  Sex: Male
  Weight: 70 kg

DRUGS (16)
  1. PEMETREXED (LY231514) [Suspect]
     Indication: MESOTHELIOMA
     Dosage: 500 MG/M2
     Dates: start: 20031117
  2. GEMCITABINE HYDROCHLORIDE-IV (GEMCITABINE) [Suspect]
     Indication: MESOTHELIOMA
     Dosage: 937.5 MG/M2
     Dates: start: 20031110
  3. MULTI-VITAMIN [Concomitant]
  4. SENNA [Concomitant]
  5. COMPAZINE [Concomitant]
  6. ZOFRAN [Concomitant]
  7. DECADRON [Concomitant]
  8. VITAMIN B-12 [Concomitant]
  9. DIGOXIN [Concomitant]
  10. MEGACE [Concomitant]
  11. ATIVAN [Concomitant]
  12. LOPRESSOR [Concomitant]
  13. REMERON [Concomitant]
  14. ZANTAC [Concomitant]
  15. ROXICET [Concomitant]
  16. PERIDEX (CHLORHEXIDINE GLUCONATE) [Concomitant]

REACTIONS (12)
  - ANAEMIA [None]
  - BLOOD UREA INCREASED [None]
  - BODY TEMPERATURE INCREASED [None]
  - CELLULITIS [None]
  - DEHYDRATION [None]
  - DYSPNOEA [None]
  - HALLUCINATION [None]
  - HEART RATE INCREASED [None]
  - NEUTROPHIL COUNT DECREASED [None]
  - OXYGEN SATURATION DECREASED [None]
  - RESPIRATORY RATE INCREASED [None]
  - TROPONIN INCREASED [None]
